FAERS Safety Report 15675550 (Version 6)
Quarter: 2019Q1

REPORT INFORMATION
  Report Type: Spontaneous
  Country: US (occurrence: US)
  Receive Date: 20181130
  Receipt Date: 20190203
  Transmission Date: 20190417
  Serious: No
  Sender: FDA-Public Use
  Company Number: US-JNJFOC-20181116314

PATIENT
  Age: 60 Year
  Sex: Female
  Weight: 136.08 kg

DRUGS (2)
  1. TREMFYA [Suspect]
     Active Substance: GUSELKUMAB
     Indication: PSORIASIS
     Route: 058
     Dates: start: 201801
  2. TYLENOL [Concomitant]
     Active Substance: ACETAMINOPHEN
     Indication: BLOOD PRESSURE ABNORMAL
     Route: 065

REACTIONS (5)
  - Device malfunction [Not Recovered/Not Resolved]
  - Accidental exposure to product [Not Recovered/Not Resolved]
  - Needle issue [Not Recovered/Not Resolved]
  - Product dose omission [Not Recovered/Not Resolved]
  - Psoriasis [Not Recovered/Not Resolved]

NARRATIVE: CASE EVENT DATE: 201811
